FAERS Safety Report 15606610 (Version 1)
Quarter: 2018Q4

REPORT INFORMATION
  Report Type: Spontaneous
  Country: US (occurrence: US)
  Receive Date: 20181110
  Receipt Date: 20181110
  Transmission Date: 20190205
  Serious: No
  Sender: FDA-Public Use
  Company Number: None

PATIENT
  Age: 38 Year
  Sex: Male
  Weight: 103.5 kg

DRUGS (2)
  1. ALPRAZOLAM 2MG TABLETS [Suspect]
     Active Substance: ALPRAZOLAM
     Indication: ANXIETY
     Dosage: ?          QUANTITY:45 TABLET(S);?
     Route: 048
     Dates: start: 20181018
  2. ALPRAZOLAM 2MG TABLETS [Suspect]
     Active Substance: ALPRAZOLAM
     Indication: MUSCLE RELAXANT THERAPY
     Dosage: ?          QUANTITY:45 TABLET(S);?
     Route: 048
     Dates: start: 20181018

REACTIONS (4)
  - Fatigue [None]
  - Malaise [None]
  - Product substitution issue [None]
  - Sciatic nerve neuropathy [None]

NARRATIVE: CASE EVENT DATE: 20181020
